FAERS Safety Report 4450669-0 (Version None)
Quarter: 2004Q3

REPORT INFORMATION
  Report Type: 
  Country: None (occurrence: None)
  Receive Date: 20040914
  Receipt Date: 20040914
  Transmission Date: 20050211
  Serious: No
  Sender: FDA-Public Use
  Company Number: None

PATIENT
  Age: 35 Year
  Sex: Male

DRUGS (9)
  1. CLOZARIL [Suspect]
     Indication: SCHIZOAFFECTIVE DISORDER
     Dosage: INCREASING ORAL
     Route: 048
  2. CLOZARIL [Suspect]
     Dosage: INCREASING ORAL
  3. NEURONTIN [Concomitant]
  4. LITHIUM [Concomitant]
  5. LEVOTHYROXINE SODIUM [Concomitant]
  6. ZYPREXA ZYDIS [Concomitant]
  7. COGENTIN [Concomitant]
  8. ALLEGRA [Concomitant]
  9. PEPCID [Concomitant]

REACTIONS (2)
  - BLOOD PRESSURE INCREASED [None]
  - HEART RATE INCREASED [None]
